FAERS Safety Report 4348386-0 (Version None)
Quarter: 2004Q2

REPORT INFORMATION
  Report Type: 
  Country: None (occurrence: None)
  Receive Date: 20040422
  Receipt Date: 20040407
  Transmission Date: 20050107
  Serious: Yes (Other)
  Sender: FDA-Public Use
  Company Number: FR_040403904

PATIENT
  Sex: Female

DRUGS (1)
  1. PERGOLIDE MESYLATE [Suspect]
     Indication: PARKINSON'S DISEASE
     Dosage: 3 MG/1 DAY
     Dates: end: 20040101

REACTIONS (2)
  - CARDIAC FAILURE [None]
  - CARDIAC VALVE DISEASE [None]
